FAERS Safety Report 5823839-4 (Version None)
Quarter: 2008Q3

REPORT INFORMATION
  Report Type: 
  Country: None (occurrence: None)
  Receive Date: 20080725
  Receipt Date: 20080717
  Transmission Date: 20090109
  Serious: Yes (Other)
  Sender: FDA-Public Use
  Company Number: US-PFIZER INC-2008060209

PATIENT
  Sex: Female
  Weight: 69.9 kg

DRUGS (9)
  1. LIPITOR [Suspect]
     Indication: BLOOD CHOLESTEROL INCREASED
  2. ALTACE [Concomitant]
  3. SYNTHROID [Concomitant]
  4. PRILOSEC [Concomitant]
  5. MACRODANTIN [Concomitant]
  6. WELLBUTRIN [Concomitant]
  7. PLAVIX [Concomitant]
  8. LEXAPRO [Concomitant]
  9. INSULIN [Concomitant]

REACTIONS (4)
  - AMNESIA [None]
  - MYALGIA [None]
  - REFLEXES ABNORMAL [None]
  - ROAD TRAFFIC ACCIDENT [None]
